FAERS Safety Report 25318520 (Version 1)
Quarter: 2025Q2

REPORT INFORMATION
  Report Type: Spontaneous
  Country: US (occurrence: US)
  Receive Date: 20250515
  Receipt Date: 20250515
  Transmission Date: 20250717
  Serious: Yes (Hospitalization, Other)
  Sender: AUROBINDO
  Company Number: US-AUROBINDO-AUR-APL-2025-024019

PATIENT
  Age: 31 Year
  Sex: Female

DRUGS (9)
  1. KETAMINE HYDROCHLORIDE [Suspect]
     Active Substance: KETAMINE HYDROCHLORIDE
     Indication: Cancer pain
     Route: 065
  2. LORAZEPAM [Suspect]
     Active Substance: LORAZEPAM
     Indication: Cancer pain
     Route: 042
  3. METHADONE [Suspect]
     Active Substance: METHADONE HYDROCHLORIDE
     Indication: Cancer pain
     Dosage: 150 MILLIGRAM, 3 TIMES A DAY
     Route: 048
  4. NORTRIPTYLINE [Suspect]
     Active Substance: NORTRIPTYLINE
     Indication: Cancer pain
     Route: 048
  5. PREGABALIN [Suspect]
     Active Substance: PREGABALIN
     Indication: Cancer pain
     Dosage: 200 MILLIGRAM, 3 TIMES A DAY
     Route: 065
  6. FENTANYL [Suspect]
     Active Substance: FENTANYL
     Indication: Cancer pain
     Route: 065
  7. FENTANYL [Suspect]
     Active Substance: FENTANYL
     Route: 065
  8. FENTANYL [Suspect]
     Active Substance: FENTANYL
     Indication: Cancer pain
     Route: 065
  9. FENTANYL [Suspect]
     Active Substance: FENTANYL
     Route: 002

REACTIONS (1)
  - Drug ineffective [Unknown]
